FAERS Safety Report 16728175 (Version 1)
Quarter: 2019Q3

REPORT INFORMATION
  Report Type: Spontaneous
  Country: FR (occurrence: FR)
  Receive Date: 20190822
  Receipt Date: 20190822
  Transmission Date: 20191005
  Serious: Yes (Hospitalization)
  Sender: FDA-Public Use
  Company Number: FR-ZYDUS-039924

PATIENT
  Age: 81 Year
  Sex: Male

DRUGS (7)
  1. ACETYLSALICYLATE LYSINE/ACETYLSALICYLIC ACID [Concomitant]
  2. EZETIMIBE/SIMVASTATIN [Concomitant]
  3. AMIODARONE [Suspect]
     Active Substance: AMIODARONE
     Indication: SUPRAVENTRICULAR TACHYCARDIA
     Route: 048
     Dates: start: 20190509, end: 20190520
  4. BRILIQUE [Concomitant]
     Active Substance: TICAGRELOR
  5. BISOPROLOL/BISOPROLOL FUMARATE/BISOPROLOL HEMIFUMARATE [Concomitant]
  6. HYDROCHLOROTHIAZIDE/VALSARTAN [Concomitant]
  7. GALVUS [Suspect]
     Active Substance: VILDAGLIPTIN
     Indication: DIABETES MELLITUS
     Route: 048
     Dates: start: 2018, end: 20190725

REACTIONS (1)
  - Pemphigoid [Recovering/Resolving]

NARRATIVE: CASE EVENT DATE: 201905
